FAERS Safety Report 9118659 (Version 1)
Quarter: 2013Q1

REPORT INFORMATION
  Report Type: Spontaneous
  Country: US (occurrence: None)
  Receive Date: 20130130
  Receipt Date: 20130130
  Transmission Date: 20140127
  Serious: Yes (Death)
  Sender: FDA-Public Use
  Company Number: UTC-028281

PATIENT
  Age: 74 Year
  Sex: Female
  Weight: 81.8 kg

DRUGS (1)
  1. REMODULIN [Suspect]
     Indication: PULMONARY ARTERIAL HYPERTENSION
     Dosage: 43.2 UG/KG (0.03 UG/KG,1 IN 1 MIN), SUBCUTANEOUS
     Dates: start: 20120322

REACTIONS (1)
  - Death [None]
